FAERS Safety Report 9236574 (Version 1)
Quarter: 2013Q1

REPORT INFORMATION
  Report Type: Spontaneous
  Country: GB (occurrence: None)
  Receive Date: 20130328
  Receipt Date: 20130328
  Transmission Date: 20140127
  Serious: Yes (Death)
  Sender: FDA-Public Use
  Company Number: BTG00060

PATIENT
  Sex: Male

DRUGS (2)
  1. DIGIFAB [Suspect]
     Indication: CARDIOACTIVE DRUG LEVEL INCREASED
     Dates: start: 20130224
  2. DIGOXIN (DIGOXIN) [Suspect]
     Indication: ATRIAL FIBRILLATION
     Dates: start: 20130223

REACTIONS (3)
  - Drug effect decreased [None]
  - Cardioactive drug level increased [None]
  - Malaise [None]
